FAERS Safety Report 7129247-0 (Version None)
Quarter: 2010Q4

REPORT INFORMATION
  Report Type: 
  Country: None (occurrence: None)
  Receive Date: 20101112
  Receipt Date: 20101108
  Transmission Date: 20110411
  Serious: Yes (Hospitalization)
  Sender: FDA-Public Use
  Company Number: DSA_44276_2010

PATIENT
  Sex: Female

DRUGS (4)
  1. XENAZINE [Suspect]
     Indication: CHOREA
     Dosage: (12.5 MG EACH MORNING) ; (12.5 MG BID) ; (12.5 MG TID) ; (HALF OF A 12.5 MG TABLET BID)
     Dates: start: 20100101, end: 20100101
  2. XENAZINE [Suspect]
     Indication: CHOREA
     Dosage: (12.5 MG EACH MORNING) ; (12.5 MG BID) ; (12.5 MG TID) ; (HALF OF A 12.5 MG TABLET BID)
     Dates: start: 20100101, end: 20100101
  3. XENAZINE [Suspect]
     Indication: CHOREA
     Dosage: (12.5 MG EACH MORNING) ; (12.5 MG BID) ; (12.5 MG TID) ; (HALF OF A 12.5 MG TABLET BID)
     Dates: start: 20100922, end: 20100101
  4. XENAZINE [Suspect]
     Indication: CHOREA
     Dosage: (12.5 MG EACH MORNING) ; (12.5 MG BID) ; (12.5 MG TID) ; (HALF OF A 12.5 MG TABLET BID)
     Dates: start: 20100101

REACTIONS (1)
  - DYSPHAGIA [None]
